FAERS Safety Report 14163746 (Version 3)
Quarter: 2019Q2

REPORT INFORMATION
  Report Type: Spontaneous
  Country: US (occurrence: US)
  Receive Date: 20171106
  Receipt Date: 20190625
  Transmission Date: 20190711
  Serious: Yes (Hospitalization)
  Sender: FDA-Public Use
  Company Number: US-INDIVIOR LIMITED-INDV-105841-2017

PATIENT
  Age: 43 Year
  Sex: Male

DRUGS (18)
  1. HYDROMORPHONE [Concomitant]
     Active Substance: HYDROMORPHONE
     Indication: POSTOPERATIVE ANALGESIA
     Dosage: AVERAGE DOSE OF LESS THAN 1MG/HR ON POD 1 TO 3
     Route: 042
  2. MORPHINE [Concomitant]
     Active Substance: MORPHINE
     Dosage: 5MG ON DAY 1 OF SURGERY 2
     Route: 042
  3. SUBOXONE [Suspect]
     Active Substance: BUPRENORPHINE HYDROCHLORIDE\NALOXONE HYDROCHLORIDE
     Dosage: 12MG, UNK (PREOPERATIVE DOSE FOR SURGERY 2)
     Route: 060
  4. BUPIVACAIN [Concomitant]
     Active Substance: BUPIVACAINE
     Indication: POSTOPERATIVE ANALGESIA
     Dosage: UNK, SURGERY 1
     Route: 008
  5. HYDROMORPHONE [Concomitant]
     Active Substance: HYDROMORPHONE
     Indication: BREAKTHROUGH PAIN
     Dosage: UNK, POD 2 AND 3
     Route: 048
  6. SUBOXONE [Suspect]
     Active Substance: BUPRENORPHINE HYDROCHLORIDE\NALOXONE HYDROCHLORIDE
     Dosage: 16MG, UNK
     Route: 060
  7. HYDROMORPHONE [Concomitant]
     Active Substance: HYDROMORPHONE
     Dosage: AVERAGED 7MG PER DAY FOR FIRST TWO DAYS
     Route: 008
  8. OPIOIDS [Concomitant]
     Active Substance: UNSPECIFIED INGREDIENT
     Dosage: UNK, LOW DOSAGE
     Route: 048
  9. MORPHINE [Concomitant]
     Active Substance: MORPHINE
     Indication: POSTOPERATIVE ANALGESIA
     Dosage: SINGLE DOSE OF 0.2MG
     Route: 008
  10. KETAMINE [Concomitant]
     Active Substance: KETAMINE
     Indication: POSTOPERATIVE ANALGESIA
     Dosage: UNK
     Route: 065
  11. KETAMINE [Concomitant]
     Active Substance: KETAMINE
     Dosage: UNK
     Route: 042
  12. SUBOXONE [Suspect]
     Active Substance: BUPRENORPHINE HYDROCHLORIDE\NALOXONE HYDROCHLORIDE
     Indication: MUSCULOSKELETAL PAIN
     Dosage: UNK
     Route: 060
  13. SUBOXONE [Suspect]
     Active Substance: BUPRENORPHINE HYDROCHLORIDE\NALOXONE HYDROCHLORIDE
     Indication: POSTOPERATIVE ANALGESIA
     Dosage: 12MG, UNK (PREOPERATIVE DOSE FOR SURGERY 1)
     Route: 060
  14. BUPIVACAIN [Concomitant]
     Active Substance: BUPIVACAINE
     Dosage: UNK, SURGERY 2
     Route: 008
  15. KETAMINE [Concomitant]
     Active Substance: KETAMINE
     Dosage: UNK, DURING POD 1 TO 3 FOR SURGERY 2
     Route: 048
  16. OXYCODONE [Concomitant]
     Active Substance: OXYCODONE
     Indication: POSTOPERATIVE ANALGESIA
     Dosage: UNK, POD 2 AND 3
     Route: 065
  17. OPIOIDS [Concomitant]
     Active Substance: UNSPECIFIED INGREDIENT
     Indication: PROCEDURAL PAIN
     Dosage: UNK
     Route: 008
  18. FENTANYL. [Concomitant]
     Active Substance: FENTANYL
     Indication: PROCEDURAL PAIN
     Dosage: AVERAGING 70 ?G/DAY
     Route: 008

REACTIONS (3)
  - Procedural pain [Unknown]
  - Arthropathy [Unknown]
  - Off label use [Unknown]
